FAERS Safety Report 14473076 (Version 2)
Quarter: 2018Q1

REPORT INFORMATION
  Report Type: Spontaneous
  Country: US (occurrence: US)
  Receive Date: 20180201
  Receipt Date: 20180327
  Transmission Date: 20180509
  Serious: Yes (Death, Hospitalization)
  Sender: FDA-Public Use
  Company Number: US-OTSUKA-2017_018581

PATIENT
  Age: 72 Year
  Sex: Male

DRUGS (3)
  1. PLETAL [Suspect]
     Active Substance: CILOSTAZOL
     Indication: INTERMITTENT CLAUDICATION
     Dosage: UNK
     Route: 065
  2. TAMSULOSIN [Suspect]
     Active Substance: TAMSULOSIN
     Indication: BENIGN PROSTATIC HYPERPLASIA
     Dosage: UNK
     Route: 065
  3. METFORMIN [Concomitant]
     Active Substance: METFORMIN HYDROCHLORIDE
     Indication: PRODUCT USED FOR UNKNOWN INDICATION
     Dosage: UNK
     Route: 065

REACTIONS (11)
  - Hypotension [Fatal]
  - Diarrhoea [Unknown]
  - Intentional overdose [Fatal]
  - Neck pain [Unknown]
  - Nausea [Unknown]
  - Agitation [Unknown]
  - Abnormal behaviour [Unknown]
  - Blood glucose increased [Fatal]
  - Vomiting [Unknown]
  - Confusional state [Unknown]
  - Headache [Unknown]
